FAERS Safety Report 20292177 (Version 1)
Quarter: 2022Q1

REPORT INFORMATION
  Report Type: Spontaneous
  Country: US (occurrence: None)
  Receive Date: 20220104
  Receipt Date: 20220104
  Transmission Date: 20220423
  Serious: No
  Sender: FDA-Public Use
  Company Number: None

PATIENT
  Age: 77 Year
  Sex: Female

DRUGS (1)
  1. DIAZEPAM [Suspect]
     Active Substance: DIAZEPAM
     Dates: start: 20211227, end: 20220103

REACTIONS (3)
  - Product prescribing error [None]
  - Transcription medication error [None]
  - Wrong product administered [None]

NARRATIVE: CASE EVENT DATE: 20220103
